FAERS Safety Report 9129342 (Version 1)
Quarter: 2013Q1

REPORT INFORMATION
  Report Type: Spontaneous
  Country: US (occurrence: US)
  Receive Date: 20130125
  Receipt Date: 20130125
  Transmission Date: 20140127
  Serious: Yes (Other)
  Sender: FDA-Public Use
  Company Number: US-SANOFI-AVENTIS-2013SA004875

PATIENT
  Sex: Female

DRUGS (3)
  1. GLYBURIDE [Suspect]
     Dates: start: 2010
  2. HUMULIN N [Suspect]
     Dosage: DOSE:30 UNIT(S)
  3. LEVOTHYROXINE [Suspect]

REACTIONS (1)
  - Thyroidectomy [Unknown]
